FAERS Safety Report 20006535 (Version 7)
Quarter: 2024Q4

REPORT INFORMATION
  Report Type: Spontaneous
  Country: GB (occurrence: GB)
  Receive Date: 20211028
  Receipt Date: 20241211
  Transmission Date: 20250114
  Serious: Yes (Life-Threatening, Other)
  Sender: TORRENT PHARMA INC.
  Company Number: None

PATIENT
  Age: 78 Year
  Sex: Male
  Weight: 88 kg

DRUGS (4)
  1. SILDENAFIL [Interacting]
     Active Substance: SILDENAFIL
     Indication: Ill-defined disorder
     Dosage: 50 MG
     Route: 065
     Dates: start: 20210712
  2. TIMOLOL [Interacting]
     Active Substance: TIMOLOL\TIMOLOL MALEATE
     Indication: Product used for unknown indication
     Dosage: UNKNOWN
     Route: 050
     Dates: start: 20210713
  3. TIMOLOL MALEATE [Interacting]
     Active Substance: TIMOLOL MALEATE
     Indication: Product used for unknown indication
     Dosage: UNKNOWN
     Route: 065
     Dates: start: 20210713
  4. IOPIDINE [Interacting]
     Active Substance: APRACLONIDINE HYDROCHLORIDE
     Indication: Product used for unknown indication
     Dosage: 5MG/ML
     Route: 050
     Dates: start: 20210713

REACTIONS (2)
  - Cardiac arrest [Recovered/Resolved]
  - Drug interaction [Unknown]

NARRATIVE: CASE EVENT DATE: 20210712
